FAERS Safety Report 20976977 (Version 1)
Quarter: 2022Q2

REPORT INFORMATION
  Report Type: Spontaneous
  Country: None (occurrence: US)
  Receive Date: 20220617
  Receipt Date: 20220617
  Transmission Date: 20220720
  Serious: Yes (Other)
  Sender: FDA-Public Use
  Company Number: US-Guthy-Renker, LLC-2130039

PATIENT
  Age: 78 Year
  Sex: Female

DRUGS (2)
  1. MEANINGFUL BEAUTY ENVIRONMENTAL PROTECTING MOISTURIZER SPF 30 [Suspect]
     Active Substance: AVOBENZONE\HOMOSALATE\OCTISALATE\OXYBENZONE
     Indication: Photosensitivity reaction
     Route: 061
     Dates: start: 20220514, end: 20220514
  2. MEANINGFUL BEAUTY CINDY CRAWFORD SKIN BRIGHTENING DECOLLETE AND NECK T [Concomitant]
     Active Substance: AVOBENZONE\OCTINOXATE\OCTISALATE\OXYBENZONE
     Route: 061
     Dates: start: 20220514, end: 20220514

REACTIONS (2)
  - Asthma [Recovered/Resolved]
  - Pruritus [Recovered/Resolved]

NARRATIVE: CASE EVENT DATE: 20220514
